FAERS Safety Report 6275932-2 (Version None)
Quarter: 2009Q3

REPORT INFORMATION
  Report Type: 
  Country: None (occurrence: None)
  Receive Date: 20090720
  Receipt Date: 20090706
  Transmission Date: 20100115
  Serious: Yes (Hospitalization)
  Sender: FDA-Public Use
  Company Number: 8045816

PATIENT
  Age: 61 Year
  Sex: Female
  Weight: 106.1 kg

DRUGS (17)
  1. KEPPRA [Suspect]
     Indication: CONVULSION
     Dosage: 2000 MG /D PO
     Route: 048
     Dates: start: 20051201, end: 20090503
  2. KEPPRA [Suspect]
     Indication: CONVULSION
     Dosage: 2500 MG /D PO
     Route: 048
  3. KEPPRA [Suspect]
     Indication: CONVULSION
     Dosage: 500 MG /D PO
     Route: 048
     Dates: start: 20090525
  4. KEPPRA [Suspect]
     Indication: CONVULSION
     Dosage: 1000 MG /D PO
     Route: 048
     Dates: start: 20050609, end: 20051201
  5. KEPPRA [Suspect]
     Indication: CONVULSION
     Dosage: 500 MG /D PO
     Route: 048
     Dates: start: 20050609, end: 20051201
  6. KEPPRA [Suspect]
     Indication: CONVULSION
     Dosage: 2500 MG /D PO
     Route: 048
     Dates: start: 20090511
  7. KEPPRA [Suspect]
     Indication: CONVULSION
     Dosage: 2000 MG /D PO
     Route: 048
     Dates: start: 20090525
  8. KEPPRA [Suspect]
     Indication: CONVULSION
     Dosage: 1500 MG /D PO
     Route: 048
     Dates: start: 20090518, end: 20090524
  9. KEPPRA [Suspect]
     Indication: CONVULSION
     Dosage: 1000 MG /D PO
     Route: 048
     Dates: start: 20090511, end: 20090517
  10. KEPPRA [Suspect]
     Indication: CONVULSION
     Dosage: 500 MG /D PO
     Route: 048
     Dates: start: 20090504, end: 20090510
  11. GENERIC KEPPRA [Suspect]
     Indication: CONVULSION
     Dosage: 2000 MG /D PO
     Route: 048
  12. METOPROLOL SUCCINATE EXTENDED RELEASE [Concomitant]
  13. LISINOPRIL [Concomitant]
  14. CENTRUM [Concomitant]
  15. ASPIRIN [Concomitant]
  16. CRESTOR [Concomitant]
  17. ALENDRONATE SODIUM [Concomitant]

REACTIONS (8)
  - ABDOMINAL PAIN UPPER [None]
  - CEREBROVASCULAR ACCIDENT [None]
  - COUGH [None]
  - DEPRESSION [None]
  - LYMPHOEDEMA [None]
  - PARTIAL SEIZURES [None]
  - PRODUCT SUBSTITUTION ISSUE [None]
  - RASH ERYTHEMATOUS [None]
